FAERS Safety Report 24457116 (Version 1)
Quarter: 2024Q4

REPORT INFORMATION
  Report Type: Spontaneous
  Country: US (occurrence: US)
  Receive Date: 20241018
  Receipt Date: 20241018
  Transmission Date: 20250115
  Serious: Yes (Other)
  Sender: ENDO
  Company Number: US-ENDO USA, INC.-2024-031133

PATIENT
  Age: 60 Year
  Sex: Male
  Weight: 92 kg

DRUGS (18)
  1. DANTRIUM [Suspect]
     Active Substance: DANTROLENE SODIUM
     Indication: Hyperthermia malignant
     Dosage: 2.4 MILLIGRAM/KILOGRAM, INFUSION (TOTAL DOSE 220 MG, OVER 30 MIN)
     Route: 041
  2. DANTRIUM [Suspect]
     Active Substance: DANTROLENE SODIUM
     Dosage: 1 MILLIGRAM/KILOGRAM, INFUSION (EVERY 8 HOUR)
     Route: 041
  3. DANTRIUM [Suspect]
     Active Substance: DANTROLENE SODIUM
     Dosage: 1 MILLIGRAM/KILOGRAM, INFUSION (EVERY 8 HOUR)
     Route: 041
  4. DANTRIUM [Suspect]
     Active Substance: DANTROLENE SODIUM
     Dosage: 1 MILLIGRAM/KILOGRAM, INFUSION (EVERY 8 HOUR)
     Route: 041
  5. VERAPAMIL [Suspect]
     Active Substance: VERAPAMIL HYDROCHLORIDE
     Indication: Angina pectoris
     Dosage: 80 MILLIGRAM, TID
     Route: 065
  6. VERAPAMIL [Suspect]
     Active Substance: VERAPAMIL HYDROCHLORIDE
     Dosage: UNK UNKNOWN, UNKNOWN
     Route: 048
  7. INSULIN NOS [Concomitant]
     Active Substance: INSULIN NOS
     Indication: Product used for unknown indication
     Dosage: 20 UNITS, DAILY (NPH EVERY MORNING)
     Route: 065
  8. INSULIN NOS [Concomitant]
     Active Substance: INSULIN NOS
     Dosage: 20 UNITS, DAILY (REGULAR EVERY MORNING)
     Route: 065
  9. TRANSDERM NITRO [Concomitant]
     Active Substance: NITROGLYCERIN
     Indication: Product used for unknown indication
     Dosage: 10 MILLIGRAM, DAILY
     Route: 065
  10. DIAZEPAM [Concomitant]
     Active Substance: DIAZEPAM
     Indication: Anxiety
     Dosage: 10 MILLIGRAM, TID
     Route: 048
  11. DIAZEPAM [Concomitant]
     Active Substance: DIAZEPAM
     Dosage: 15 MILLIGRAM, UNKNOWN (1 HR PRIOR TO ARRIVAL IN OPERATING ROOM)
     Route: 065
  12. FENTANYL [Concomitant]
     Active Substance: FENTANYL
     Indication: Anaesthesia
     Dosage: 33 MILLIGRAM/KILOGRAM, INFUSION
     Route: 040
  13. ATRACURIUM [Concomitant]
     Active Substance: ATRACURIUM
     Indication: Anaesthesia
     Dosage: 50 MILLIGRAM, UNKNOWN
     Route: 065
  14. MORPHINE SULFATE [Concomitant]
     Active Substance: MORPHINE SULFATE
     Indication: Sedation
     Dosage: UNK UNKNOWN, UNKNOWN (INCREMENTAL DOSES)
     Route: 042
  15. MORPHINE SULFATE [Concomitant]
     Active Substance: MORPHINE SULFATE
     Indication: Analgesic therapy
     Dosage: 10 MILLIGRAM, UNKNOWN (1 HR PRIOR TO ARRIVAL IN OPERATING ROOM)
     Route: 030
  16. RANITIDINE [Concomitant]
     Active Substance: RANITIDINE
     Indication: Product used for unknown indication
     Dosage: 150 MILLIGRAM, UNKNOWN (AT BEDTIME)
     Route: 048
  17. METOCLOPRAMIDE [Concomitant]
     Active Substance: METOCLOPRAMIDE
     Indication: Product used for unknown indication
     Dosage: 10 MILLIGRAM, UNKNOWN
     Route: 065
  18. DEXTROSE\SODIUM CHLORIDE [Concomitant]
     Active Substance: DEXTROSE\SODIUM CHLORIDE
     Indication: Product used for unknown indication
     Dosage: 75 ML/H, INFUSION (STARTED ON THE NIGHT BEFORE SURGERY)
     Route: 041

REACTIONS (6)
  - Metabolic acidosis [Recovered/Resolved]
  - Hyperglycaemia [Recovered/Resolved]
  - Myocardial depression [Recovered/Resolved]
  - Drug interaction [Recovered/Resolved]
  - Hyperkalaemia [Recovered/Resolved]
  - Asthenia [Recovered/Resolved]
